FAERS Safety Report 8884410 (Version 2)
Quarter: 2012Q4

REPORT INFORMATION
  Report Type: 
  Country: FR (occurrence: FR)
  Receive Date: 20121102
  Receipt Date: 20121112
  Transmission Date: 20130627
  Serious: Yes (Other)
  Sender: FDA-Public Use
  Company Number: FR-ABBOTT-12P-056-0980616-00

PATIENT
  Sex: Male
  Weight: 68 kg

DRUGS (1)
  1. VERCYTE [Suspect]
     Indication: POLYCYTHAEMIA VERA
     Route: 048
     Dates: start: 2011

REACTIONS (3)
  - Medication error [Recovered/Resolved]
  - Overdose [Recovered/Resolved]
  - Unevaluable event [Recovered/Resolved]
